FAERS Safety Report 11729793 (Version 1)
Quarter: 2015Q4

REPORT INFORMATION
  Report Type: Spontaneous
  Country: FR (occurrence: FR)
  Receive Date: 20151112
  Receipt Date: 20151112
  Transmission Date: 20160304
  Serious: Yes (Hospitalization, Other)
  Sender: FDA-Public Use
  Company Number: FR-KADMON PHARMACEUTICALS, LLC-KAD201312-001582

PATIENT
  Sex: Male

DRUGS (4)
  1. IMMUNOGLOBULINS [Suspect]
     Active Substance: HUMAN IMMUNOGLOBULIN G
     Indication: MEASLES
  2. RIBAVIRIN. [Suspect]
     Active Substance: RIBAVIRIN
     Indication: MEASLES
     Route: 042
  3. IMMUNOGLOBULINS [Suspect]
     Active Substance: HUMAN IMMUNOGLOBULIN G
     Indication: PNEUMONITIS
  4. RIBAVIRIN. [Suspect]
     Active Substance: RIBAVIRIN
     Indication: PNEUMONITIS

REACTIONS (4)
  - Product use issue [Unknown]
  - Acute respiratory failure [Unknown]
  - Haemolytic anaemia [Unknown]
  - Drug ineffective for unapproved indication [Unknown]
